FAERS Safety Report 8516370-9 (Version None)
Quarter: 2012Q3

REPORT INFORMATION
  Report Type: 
  Country: None (occurrence: None)
  Receive Date: 20120718
  Receipt Date: 20120709
  Transmission Date: 20120928
  Serious: Yes (Death)
  Sender: FDA-Public Use
  Company Number: US-BIOGENIDEC-2012BI021931

PATIENT
  Age: 52 Year
  Sex: Male

DRUGS (8)
  1. HUMALOG [Concomitant]
  2. PRAVACHOL [Concomitant]
  3. TYSABRI [Suspect]
     Indication: MULTIPLE SCLEROSIS
     Route: 042
     Dates: start: 20120116
  4. NEURONTIN [Concomitant]
  5. SIMVASTATIN [Concomitant]
  6. LANTUS [Concomitant]
  7. PLAVIX [Concomitant]
  8. NAPROXEN [Concomitant]

REACTIONS (1)
  - DEATH [None]
